FAERS Safety Report 5384645-0 (Version None)
Quarter: 2007Q3

REPORT INFORMATION
  Report Type: 
  Country: None (occurrence: None)
  Receive Date: 20070711
  Receipt Date: 20070307
  Transmission Date: 20080115
  Serious: Yes (Hospitalization)
  Sender: FDA-Public Use
  Company Number: US-BOEHRINGER INGELHEIM PHARMACEUTICALS, INC.-2006-BP-02488BP

PATIENT
  Sex: Male
  Weight: 81 kg

DRUGS (9)
  1. MIRAPEX [Suspect]
     Indication: PARKINSON'S DISEASE
     Route: 048
     Dates: start: 19970601, end: 20030101
  2. ELDEPRYL [Concomitant]
     Indication: PARKINSON'S DISEASE
     Route: 048
     Dates: start: 19920101
  3. SINEMET [Concomitant]
     Indication: PARKINSON'S DISEASE
     Route: 048
     Dates: start: 19970101
  4. PERMAX [Concomitant]
     Indication: PARKINSON'S DISEASE
     Route: 048
     Dates: start: 19970101, end: 19970101
  5. COMTAN [Concomitant]
     Indication: PARKINSON'S DISEASE
     Dates: start: 20000721
  6. ATIVAN [Concomitant]
     Dates: start: 19971222
  7. PROZAC [Concomitant]
     Indication: DEPRESSION
     Dates: start: 19980101
  8. PAXIL [Concomitant]
     Indication: DEPRESSION
     Dates: start: 19990101, end: 19990101
  9. VITAMIN E [Concomitant]
     Dates: start: 20000101

REACTIONS (31)
  - ABDOMINAL PAIN [None]
  - ABDOMINAL PAIN UPPER [None]
  - ADJUSTMENT DISORDER WITH DEPRESSED MOOD [None]
  - ANGINA PECTORIS [None]
  - BACK PAIN [None]
  - CERVICAL SPINAL STENOSIS [None]
  - CHEST PAIN [None]
  - CONSTIPATION [None]
  - DEPRESSION [None]
  - DISTURBANCE IN ATTENTION [None]
  - FATIGUE [None]
  - HYPERHIDROSIS [None]
  - HYPERLIPIDAEMIA [None]
  - HYPOAESTHESIA [None]
  - HYPOTENSION [None]
  - INTERVERTEBRAL DISC PROTRUSION [None]
  - LIPOMA [None]
  - MEMORY IMPAIRMENT [None]
  - MENINGIOMA BENIGN [None]
  - MIDDLE INSOMNIA [None]
  - MUSCULOSKELETAL PAIN [None]
  - NARCISSISTIC PERSONALITY DISORDER [None]
  - NAUSEA [None]
  - NECK PAIN [None]
  - OBSESSIVE-COMPULSIVE DISORDER [None]
  - PARAESTHESIA [None]
  - PATHOLOGICAL GAMBLING [None]
  - ROAD TRAFFIC ACCIDENT [None]
  - SOMNOLENCE [None]
  - SUICIDAL BEHAVIOUR [None]
  - SUICIDE ATTEMPT [None]
